FAERS Safety Report 8820955 (Version 1)
Quarter: 2012Q4

REPORT INFORMATION
  Report Type: Report from Study
  Country: JP (occurrence: JP)
  Receive Date: 20121002
  Receipt Date: 20121002
  Transmission Date: 20130627
  Serious: Yes (Other)
  Sender: FDA-Public Use
  Company Number: JP-009507513-1210JPN000993

PATIENT
  Age: 67 Year
  Sex: Female
  Weight: 54 kg

DRUGS (3)
  1. PEGINTRON [Suspect]
     Indication: HEPATITIS C
     Dosage: 1.5 Microgram per kilogram, qw
     Route: 058
     Dates: start: 20120713
  2. REBETOL [Suspect]
     Indication: HEPATITIS C
     Dosage: 600 mg, qd
     Route: 048
     Dates: start: 20120713
  3. TELAVIC [Suspect]
     Indication: HEPATITIS C
     Dosage: 2250 mg, qd
     Route: 048
     Dates: start: 20120713, end: 20120725

REACTIONS (1)
  - Nausea [Recovered/Resolved]
